FAERS Safety Report 4616367-5 (Version None)
Quarter: 2005Q1

REPORT INFORMATION
  Report Type: 
  Country: None (occurrence: None)
  Receive Date: 20050321
  Receipt Date: 20050307
  Transmission Date: 20050727
  Serious: Yes (Other)
  Sender: FDA-Public Use
  Company Number: US014890

PATIENT
  Age: 54 Year
  Sex: Male

DRUGS (2)
  1. GABITRIL [Suspect]
     Indication: ANXIETY
     Dosage: 4 MG TID ORAL
     Route: 048
  2. GABITRIL [Suspect]
     Indication: INSOMNIA
     Dosage: 4 MG TID ORAL
     Route: 048

REACTIONS (1)
  - CONVULSION [None]
